FAERS Safety Report 4893512-8 (Version None)
Quarter: 2006Q1

REPORT INFORMATION
  Report Type: 
  Country: None (occurrence: None)
  Receive Date: 20060127
  Receipt Date: 20060123
  Transmission Date: 20060701
  Serious: Yes (Other)
  Sender: FDA-Public Use
  Company Number: JP-AVENTIS-200610226JP

PATIENT
  Age: 40 Year
  Sex: Female

DRUGS (2)
  1. ALLEGRA [Suspect]
     Route: 048
  2. UNKNOWN DRUG [Concomitant]

REACTIONS (1)
  - ERYTHEMA MULTIFORME [None]
